FAERS Safety Report 7294860-7 (Version None)
Quarter: 2011Q1

REPORT INFORMATION
  Report Type: 
  Country: None (occurrence: None)
  Receive Date: 20110211
  Receipt Date: 20110211
  Transmission Date: 20110831
  Serious: Yes (Other)
  Sender: FDA-Public Use
  Company Number: None

PATIENT
  Age: 61 Year
  Sex: Female
  Weight: 64.8644 kg

DRUGS (1)
  1. DICYCLOMINE [Suspect]
     Indication: GASTROENTERITIS VIRAL
     Dosage: #15 1 CAP 3X/DAY BY MOUTH
     Route: 048
     Dates: start: 20101227, end: 20110101

REACTIONS (3)
  - SOMNOLENCE [None]
  - VISION BLURRED [None]
  - VISUAL IMPAIRMENT [None]
